FAERS Safety Report 17581699 (Version 1)
Quarter: 2020Q1

REPORT INFORMATION
  Report Type: Spontaneous
  Country: US (occurrence: US)
  Receive Date: 20200324
  Receipt Date: 20200324
  Transmission Date: 20200409
  Serious: Yes (Other)
  Sender: FDA-Public Use
  Company Number: None

PATIENT
  Age: 59 Year
  Sex: Female
  Weight: 65.77 kg

DRUGS (1)
  1. REMICADE [Suspect]
     Active Substance: INFLIXIMAB
     Indication: SARCOIDOSIS
     Dosage: ?          OTHER FREQUENCY:Q6WK;?
     Route: 042

REACTIONS (6)
  - Skin burning sensation [None]
  - Dry skin [None]
  - Pruritus [None]
  - Infusion related reaction [None]
  - Pyrexia [None]
  - Skin exfoliation [None]

NARRATIVE: CASE EVENT DATE: 20200311
